FAERS Safety Report 11672237 (Version 1)
Quarter: 2015Q4

REPORT INFORMATION
  Report Type: Spontaneous
  Country: US (occurrence: US)
  Receive Date: 20151027
  Receipt Date: 20151027
  Transmission Date: 20160304
  Serious: No
  Sender: FDA-Public Use
  Company Number: US-ELI_LILLY_AND_COMPANY-US201006005335

PATIENT
  Sex: Female

DRUGS (2)
  1. FORTEO [Suspect]
     Active Substance: TERIPARATIDE
     Indication: OSTEOPOROSIS
     Dosage: 20 UG, DAILY (1/D)
  2. VICODIN [Concomitant]
     Active Substance: ACETAMINOPHEN\HYDROCODONE BITARTRATE

REACTIONS (10)
  - Rheumatoid arthritis [Unknown]
  - Pain in extremity [Unknown]
  - Dysphagia [Unknown]
  - Arthralgia [Unknown]
  - Asthenia [Unknown]
  - Sinusitis [Recovered/Resolved]
  - Lower respiratory tract infection [Recovered/Resolved]
  - Weight decreased [Unknown]
  - Abdominal discomfort [Unknown]
  - Off label use [Unknown]
